FAERS Safety Report 22322514 (Version 1)
Quarter: 2023Q2

REPORT INFORMATION
  Report Type: Spontaneous
  Country: US (occurrence: US)
  Receive Date: 20230516
  Receipt Date: 20230516
  Transmission Date: 20230721
  Serious: No
  Sender: FDA-Public Use
  Company Number: US-ARCUTIS BIOTHERAPEUTICS INC-2023AER000020

PATIENT

DRUGS (4)
  1. ZORYVE [Suspect]
     Active Substance: ROFLUMILAST
     Indication: Psoriasis
     Dosage: UNK, QD
     Route: 061
  2. RAMIPRIL [Concomitant]
     Active Substance: RAMIPRIL
     Indication: Product used for unknown indication
     Dosage: UNK
  3. MAGNESIUM [Concomitant]
     Active Substance: MAGNESIUM
     Indication: Product used for unknown indication
     Dosage: UNK
  4. VITAMINS NOS [Concomitant]
     Active Substance: VITAMINS
     Indication: Product used for unknown indication
     Dosage: UNK

REACTIONS (5)
  - Application site pruritus [Unknown]
  - Skin fissures [Unknown]
  - Skin injury [Unknown]
  - Somnolence [Unknown]
  - Diarrhoea [Unknown]
